FAERS Safety Report 8015305-5 (Version None)
Quarter: 2011Q4

REPORT INFORMATION
  Report Type: 
  Country: None (occurrence: None)
  Receive Date: 20111223
  Receipt Date: 20111214
  Transmission Date: 20120403
  Serious: Yes (Hospitalization)
  Sender: FDA-Public Use
  Company Number: 2011HGS-002784

PATIENT
  Age: 38 Year
  Sex: Female
  Weight: 52 kg

DRUGS (8)
  1. HYDROXYCHLOROQUINE (HYDROXYCHLOROQUINE) (HYDROXYCHLOROQUINE) [Concomitant]
  2. IRBESARTAN (IRBESARTAN) (IRBESARTAN) [Concomitant]
  3. FERROUS SULFATE (FERROUS SULFATE) (FERROUS SULFATE) [Concomitant]
  4. REBAMIPIDE (REBAMIPIDE) (REBAMIPIDE) [Concomitant]
  5. SIMVASTATIN [Concomitant]
  6. MOSAPRIDE (MOSAPRIDE) (MOSAPRIDE) [Concomitant]
  7. BELIMUMAB [Suspect]
     Indication: SYSTEMIC LUPUS ERYTHEMATOSUS
     Dosage: 10 MG/KG, 1 IN 28 D, INTRAVENOUS DRIP
     Route: 041
     Dates: start: 20090120
  8. MYCOPHENOLIC ACID (MYCOPHENOLIC ACID) (MYCOPHENOLIC ACID) [Concomitant]

REACTIONS (10)
  - COUGH [None]
  - BLOOD UREA INCREASED [None]
  - BLOOD CREATININE INCREASED [None]
  - LOBAR PNEUMONIA [None]
  - ASTHMA [None]
  - OBSTRUCTIVE AIRWAYS DISORDER [None]
  - HAEMOGLOBIN DECREASED [None]
  - PRODUCTIVE COUGH [None]
  - CHILLS [None]
  - PYREXIA [None]
